FAERS Safety Report 19755805 (Version 3)
Quarter: 2021Q3

REPORT INFORMATION
  Report Type: Spontaneous
  Country: JP (occurrence: JP)
  Receive Date: 20210827
  Receipt Date: 20210929
  Transmission Date: 20211014
  Serious: Yes (Death)
  Sender: FDA-Public Use
  Company Number: JP-EISAI MEDICAL RESEARCH-EC-2021-098504

PATIENT
  Sex: Male

DRUGS (2)
  1. LENVIMA [Suspect]
     Active Substance: LENVATINIB
     Route: 048
     Dates: start: 202107, end: 202107
  2. LENVIMA [Suspect]
     Active Substance: LENVATINIB
     Indication: MALIGNANT NEOPLASM OF THYMUS
     Route: 048
     Dates: start: 202106, end: 202107

REACTIONS (2)
  - Decreased appetite [Recovering/Resolving]
  - Cardiac failure [Fatal]

NARRATIVE: CASE EVENT DATE: 202107
